FAERS Safety Report 17762223 (Version 1)
Quarter: 2020Q2

REPORT INFORMATION
  Report Type: Report from Study
  Country: IT (occurrence: IT)
  Receive Date: 20200508
  Receipt Date: 20200508
  Transmission Date: 20200714
  Serious: Yes (Hospitalization)
  Sender: FDA-Public Use
  Company Number: IT-ELI_LILLY_AND_COMPANY-IT202004011138

PATIENT
  Age: 79 Year
  Sex: Male

DRUGS (12)
  1. SONGAR [Concomitant]
     Active Substance: TRIAZOLAM
     Dosage: UNK UNK, UNKNOWN
  2. HUMALOG [Concomitant]
     Active Substance: INSULIN LISPRO
     Dosage: UNK UNK, UNKNOWN
  3. PANTOPRAZOLE SODIUM SESQUIHYDRATE [Interacting]
     Active Substance: PANTOPRAZOLE SODIUM
     Indication: PRODUCT USED FOR UNKNOWN INDICATION
     Dosage: 20 MG, DAILY
     Route: 065
     Dates: start: 20200101, end: 20200415
  4. LORTAAN [Concomitant]
     Active Substance: LOSARTAN POTASSIUM
     Dosage: UNK UNK, UNKNOWN
  5. BISOPROLOL FUMARATE. [Concomitant]
     Active Substance: BISOPROLOL FUMARATE
     Dosage: 1.25 MG, UNKNOWN
  6. OLANZAPINE. [Suspect]
     Active Substance: OLANZAPINE
     Indication: PRODUCT USED FOR UNKNOWN INDICATION
     Dosage: 1.25 MG, DAILY
     Route: 065
     Dates: start: 20200101, end: 20200415
  7. LASIX [Concomitant]
     Active Substance: FUROSEMIDE
     Dosage: UNK UNK, UNKNOWN
  8. ELIQUIS [Concomitant]
     Active Substance: APIXABAN
     Dosage: 2 DOSAGE FORM, UNKNOWN
  9. LEVOBREN [Interacting]
     Active Substance: LEVOSULPIRIDE
     Indication: PRODUCT USED FOR UNKNOWN INDICATION
     Dosage: 15 DROPS, DAILY
     Route: 048
     Dates: start: 20200101, end: 20200415
  10. BRIMICA GENUAIR [Concomitant]
     Active Substance: ACLIDINIUM BROMIDE\FORMOTEROL FUMARATE
     Dosage: UNK UNK, UNKNOWN
  11. CARDURA [Concomitant]
     Active Substance: DOXAZOSIN MESYLATE
     Dosage: UNK UNK, UNKNOWN
  12. MIRAPEXIN [Concomitant]
     Active Substance: PRAMIPEXOLE
     Dosage: UNK UNK, UNKNOWN

REACTIONS (2)
  - Electrocardiogram QT prolonged [Recovering/Resolving]
  - Drug interaction [Recovering/Resolving]

NARRATIVE: CASE EVENT DATE: 20200415
